FAERS Safety Report 24835880 (Version 4)
Quarter: 2025Q2

REPORT INFORMATION
  Report Type: Report from Study
  Country: KR (occurrence: KR)
  Receive Date: 20250113
  Receipt Date: 20250513
  Transmission Date: 20250716
  Serious: Yes (Death, Hospitalization)
  Sender: ROCHE
  Company Number: KR-ROCHE-10000149145

PATIENT
  Age: 73 Year
  Sex: Male
  Weight: 64.5 kg

DRUGS (8)
  1. TIRAGOLUMAB [Suspect]
     Active Substance: TIRAGOLUMAB
     Indication: Non-small cell lung cancer
     Dosage: ON 01-JAN-2024, HE RECEIVED THE MOST RECENT DOSE OF TIRAGOLUMAB PRIOR TO SAE (600 MG).
     Route: 042
     Dates: start: 20211229
  2. ATEZOLIZUMAB [Suspect]
     Active Substance: ATEZOLIZUMAB
     Indication: Non-small cell lung cancer
     Dosage: ON 01-JAN-2024, HE RECEIVED THE MOTST RECENT DOSE OF ATEZOLIZUMAB PRIOR TO SAE (1200 MG).
     Route: 042
     Dates: start: 20211229
  3. EBASTINE [Concomitant]
     Active Substance: EBASTINE
     Indication: Pruritus
     Dosage: MEDICATION DOSE: 1 TABLET
     Route: 048
     Dates: start: 20241204
  4. Megate [Concomitant]
     Dosage: PROPHYLAXIS OF ANOREXIA
     Route: 048
     Dates: start: 20241204
  5. Fiasp flextouch inj [Concomitant]
     Indication: Diabetes mellitus
     Route: 058
     Dates: start: 20241205, end: 20241205
  6. CALCIUM POLYSTYRENE SULFONATE [Concomitant]
     Active Substance: CALCIUM POLYSTYRENE SULFONATE
     Indication: Hyperkalaemia
     Dosage: 2 PACK
     Route: 048
     Dates: start: 20241112, end: 20241121
  7. Bioflor [Concomitant]
     Dosage: 250 POWDER 1 PACK
     Route: 048
     Dates: start: 20241224
  8. Dulackan easy syr [Concomitant]
     Route: 048
     Dates: start: 20241227

REACTIONS (1)
  - Pneumonia [Fatal]

NARRATIVE: CASE EVENT DATE: 20240819
